FAERS Safety Report 25794942 (Version 1)
Quarter: 2025Q3

REPORT INFORMATION
  Report Type: Spontaneous
  Country: GB (occurrence: GB)
  Receive Date: 20250912
  Receipt Date: 20250912
  Transmission Date: 20251020
  Serious: Yes (Other)
  Sender: CELLTRION
  Company Number: GB-ROCHE-10000201654

PATIENT

DRUGS (9)
  1. TRASTUZUMAB [Suspect]
     Active Substance: TRASTUZUMAB
     Indication: HER2 positive breast cancer
     Dates: start: 202402
  2. TRASTUZUMAB [Suspect]
     Active Substance: TRASTUZUMAB
     Dates: start: 202409
  3. INFLIXIMAB [Suspect]
     Active Substance: INFLIXIMAB
     Indication: Pneumonitis
  4. INFLIXIMAB [Suspect]
     Active Substance: INFLIXIMAB
  5. CAPECITABINE [Suspect]
     Active Substance: CAPECITABINE
     Indication: Breast cancer metastatic
     Route: 048
     Dates: start: 202402
  6. CAPECITABINE [Suspect]
     Active Substance: CAPECITABINE
     Dates: start: 202409
  7. TUCATINIB [Suspect]
     Active Substance: TUCATINIB
     Indication: Breast cancer metastatic
     Dates: start: 202402
  8. TUCATINIB [Suspect]
     Active Substance: TUCATINIB
     Dates: start: 202409
  9. TRASTUZUMAB DERUXTECAN [Concomitant]
     Active Substance: TRASTUZUMAB DERUXTECAN
     Dates: start: 202212, end: 202402

REACTIONS (2)
  - Interstitial lung abnormality [Unknown]
  - Intentional product use issue [Unknown]
